FAERS Safety Report 5718930-7 (Version None)
Quarter: 2008Q2

REPORT INFORMATION
  Report Type: 
  Country: None (occurrence: None)
  Receive Date: 20080423
  Receipt Date: 20080409
  Transmission Date: 20081010
  Serious: Yes (Hospitalization)
  Sender: FDA-Public Use
  Company Number: DSJ-2008-04428

PATIENT
  Age: 7 Decade
  Sex: Male

DRUGS (3)
  1. OLMESARTAN MEDOXOMIL [Suspect]
     Indication: HYPERTENSION
     Dosage: 20 MG, PER ORAL; END OF JANUARY
     Route: 048
     Dates: end: 20080228
  2. PLAVIX [Suspect]
     Dosage: 75 MG; END OF JANUARY
     Dates: end: 20080228
  3. HYDANTOL (PHENYTOIN) (PHENYTOIN) [Concomitant]

REACTIONS (1)
  - STEVENS-JOHNSON SYNDROME [None]
